FAERS Safety Report 20474091 (Version 2)
Quarter: 2022Q1

REPORT INFORMATION
  Report Type: Spontaneous
  Country: CN (occurrence: CN)
  Receive Date: 20220215
  Receipt Date: 20220218
  Transmission Date: 20220423
  Serious: Yes (Hospitalization)
  Sender: FDA-Public Use
  Company Number: CN-NOVARTISPH-NVSC2022CN033890

PATIENT
  Age: 62 Year
  Sex: Female
  Weight: 49 kg

DRUGS (1)
  1. DICLOFENAC SODIUM [Suspect]
     Active Substance: DICLOFENAC SODIUM
     Indication: Intervertebral disc protrusion
     Dosage: 75 MG, QD
     Route: 048
     Dates: start: 20220108, end: 20220204

REACTIONS (3)
  - Abdominal distension [Recovering/Resolving]
  - Peptic ulcer [Recovering/Resolving]
  - Decreased appetite [Recovering/Resolving]

NARRATIVE: CASE EVENT DATE: 20220204
